FAERS Safety Report 13297628 (Version 1)
Quarter: 2017Q1

REPORT INFORMATION
  Report Type: Spontaneous
  Country: US (occurrence: US)
  Receive Date: 20170303
  Receipt Date: 20170303
  Transmission Date: 20170428
  Serious: Yes (Hospitalization)
  Sender: FDA-Public Use
  Company Number: None

PATIENT
  Age: 66 Year
  Sex: Male
  Weight: 110.3 kg

DRUGS (2)
  1. APIXABAN [Suspect]
     Active Substance: APIXABAN
     Indication: PULMONARY EMBOLISM
     Route: 048
     Dates: start: 20170123, end: 20170215
  2. CARBAMAZEPINE. [Suspect]
     Active Substance: CARBAMAZEPINE
     Indication: SEIZURE
     Route: 048
     Dates: start: 20170120, end: 20170215

REACTIONS (7)
  - Contraindication to medical treatment [None]
  - Drug prescribing error [None]
  - Drug interaction [None]
  - Back pain [None]
  - Procedural haemorrhage [None]
  - International normalised ratio increased [None]
  - Pulmonary embolism [None]

NARRATIVE: CASE EVENT DATE: 20170214
